FAERS Safety Report 17653644 (Version 1)
Quarter: 2020Q2

REPORT INFORMATION
  Report Type: Spontaneous
  Country: US (occurrence: US)
  Receive Date: 20200409
  Receipt Date: 20200409
  Transmission Date: 20200713
  Serious: Yes (Hospitalization, Other)
  Sender: FDA-Public Use
  Company Number: US-ASTRAZENECA-2020SE28464

PATIENT
  Age: 189 Day
  Sex: Male
  Weight: 6.8 kg

DRUGS (9)
  1. LASIX [Concomitant]
     Active Substance: FUROSEMIDE
  2. AMOXICILLIN. [Concomitant]
     Active Substance: AMOXICILLIN
  3. CHOLECALCIFEROL [Concomitant]
     Active Substance: CHOLECALCIFEROL
  4. SYNAGIS [Suspect]
     Active Substance: PALIVIZUMAB
     Indication: TALIPES
     Dosage: 0.87ML UNKNOWN
     Route: 030
     Dates: start: 20200303, end: 20200303
  5. OMEPRAZOLE. [Concomitant]
     Active Substance: OMEPRAZOLE
  6. DIGOXIN. [Concomitant]
     Active Substance: DIGOXIN
     Indication: SUPERIOR VENA CAVA SYNDROME
  7. SYNAGIS [Suspect]
     Active Substance: PALIVIZUMAB
     Indication: ANTIVIRAL PROPHYLAXIS
     Route: 030
     Dates: start: 20191126
  8. SYNAGIS [Suspect]
     Active Substance: PALIVIZUMAB
     Indication: ANTIVIRAL PROPHYLAXIS
     Dosage: 0.87ML UNKNOWN
     Route: 030
     Dates: start: 20200303, end: 20200303
  9. SYNAGIS [Suspect]
     Active Substance: PALIVIZUMAB
     Indication: TALIPES
     Route: 030
     Dates: start: 20191126

REACTIONS (2)
  - Device leakage [Recovered/Resolved]
  - Weight gain poor [Unknown]

NARRATIVE: CASE EVENT DATE: 20200320
